FAERS Safety Report 4363983-4 (Version None)
Quarter: 2004Q2

REPORT INFORMATION
  Report Type: 
  Country: None (occurrence: None)
  Receive Date: 20040519
  Receipt Date: 20040507
  Transmission Date: 20050107
  Serious: Yes (Other)
  Sender: FDA-Public Use
  Company Number: FR-JNJFOC-20040501582

PATIENT
  Age: 82 Year
  Sex: Male

DRUGS (2)
  1. REMINYL [Suspect]
     Dosage: 4 MG, 2 IN 1 DAY, ORAL
     Route: 048
     Dates: start: 20040401, end: 20040401
  2. PLAVIX [Concomitant]

REACTIONS (1)
  - ANGIONEUROTIC OEDEMA [None]
